FAERS Safety Report 19421829 (Version 1)
Quarter: 2021Q2

REPORT INFORMATION
  Report Type: Spontaneous
  Country: US (occurrence: US)
  Receive Date: 20210615
  Receipt Date: 20210615
  Transmission Date: 20210717
  Serious: Yes (Hospitalization)
  Sender: FDA-Public Use
  Company Number: None

PATIENT
  Age: 67 Year
  Sex: Female

DRUGS (1)
  1. EPCLUSA [Suspect]
     Active Substance: SOFOSBUVIR\VELPATASVIR
     Indication: HEPATITIS C
     Dosage: OTHER DOSE:400/100 DF ; DAILY ORAL?
     Route: 048
     Dates: start: 20210511

REACTIONS (6)
  - Fall [None]
  - Headache [None]
  - Dizziness [None]
  - Loss of consciousness [None]
  - Fatigue [None]
  - Patella fracture [None]

NARRATIVE: CASE EVENT DATE: 20210512
